FAERS Safety Report 11653323 (Version 3)
Quarter: 2016Q1

REPORT INFORMATION
  Report Type: Report from Study
  Country: US (occurrence: US)
  Receive Date: 20151022
  Receipt Date: 20160224
  Transmission Date: 20160525
  Serious: Yes (Hospitalization)
  Sender: FDA-Public Use
  Company Number: US-GLAXOSMITHKLINE-US2015GSK149778

PATIENT
  Age: 29 Year
  Sex: Female
  Weight: 68.9 kg

DRUGS (4)
  1. ANTIMALARIALS (NOS) [Concomitant]
     Active Substance: UNSPECIFIED INGREDIENT
     Dosage: 200 MG, BID
     Dates: start: 20090708
  2. BELIMUMAB [Suspect]
     Active Substance: BELIMUMAB
     Indication: SYSTEMIC LUPUS ERYTHEMATOSUS
     Dosage: UNK
     Dates: start: 20110830
  3. METHOTREXATE [Concomitant]
     Active Substance: METHOTREXATE
     Indication: IMMUNOSUPPRESSANT DRUG THERAPY
     Dosage: 25 MG, WE
     Dates: start: 20090708
  4. CORTICOSTEROIDS [Concomitant]
     Active Substance: CORTICOSTEROID NOS
     Dosage: 5 MG, 1D
     Dates: start: 20090709

REACTIONS (1)
  - Pilonidal cyst [Recovered/Resolved]

NARRATIVE: CASE EVENT DATE: 20150707
